FAERS Safety Report 6872518-3 (Version None)
Quarter: 2010Q3

REPORT INFORMATION
  Report Type: 
  Country: None (occurrence: None)
  Receive Date: 20100723
  Receipt Date: 20081126
  Transmission Date: 20110219
  Serious: No
  Sender: FDA-Public Use
  Company Number: US-PFIZER INC-2008083172

PATIENT
  Sex: Female
  Weight: 48.53 kg

DRUGS (3)
  1. CHANTIX [Suspect]
     Indication: SMOKING CESSATION THERAPY
     Route: 048
     Dates: start: 20071101, end: 20071119
  2. ZOCOR [Concomitant]
  3. NEXIUM [Concomitant]

REACTIONS (2)
  - AFFECT LABILITY [None]
  - TACHYCARDIA [None]
